FAERS Safety Report 5196848-9 (Version None)
Quarter: 2007Q1

REPORT INFORMATION
  Report Type: 
  Country: None (occurrence: None)
  Receive Date: 20070103
  Receipt Date: 20061228
  Transmission Date: 20070707
  Serious: Yes (Other)
  Sender: FDA-Public Use
  Company Number: PHNU2006DE04036

PATIENT
  Age: 51 Year
  Sex: Female

DRUGS (5)
  1. LOCOL [Suspect]
     Indication: HYPERCHOLESTEROLAEMIA
     Dosage: 20 MG, QD
     Route: 048
     Dates: start: 20060907, end: 20061010
  2. CELLCEPT [Concomitant]
     Dosage: 2000 MG DAILY
     Route: 048
  3. DECORTIN-H [Concomitant]
     Dosage: 5 MG DAILY
     Route: 048
  4. BENALAPRIL [Concomitant]
     Dosage: 2.5 MG DAILY
     Route: 048
  5. TRIAMTERENE AND HYDROCHLOROTHIAZIDE [Concomitant]
     Dosage: 0.5 DF DAILY
     Route: 048

REACTIONS (6)
  - ANXIETY [None]
  - BLOOD CREATINE PHOSPHOKINASE INCREASED [None]
  - DEPERSONALISATION [None]
  - MYALGIA [None]
  - NERVOUSNESS [None]
  - RESTLESSNESS [None]
